FAERS Safety Report 18883317 (Version 1)
Quarter: 2021Q1

REPORT INFORMATION
  Report Type: Spontaneous
  Country: US (occurrence: US)
  Receive Date: 20210212
  Receipt Date: 20210212
  Transmission Date: 20210420
  Serious: No
  Sender: FDA-Public Use
  Company Number: US-JNJFOC-20210204452

PATIENT
  Sex: Female

DRUGS (1)
  1. ROGAINE [Suspect]
     Active Substance: MINOXIDIL
     Indication: ALOPECIA AREATA
     Route: 065

REACTIONS (1)
  - Product use in unapproved indication [Unknown]
